FAERS Safety Report 9726054 (Version 1)
Quarter: 2013Q4

REPORT INFORMATION
  Report Type: Spontaneous
  Country: FI (occurrence: None)
  Receive Date: 20131129
  Receipt Date: 20131129
  Transmission Date: 20140711
  Serious: Yes (Death)
  Sender: FDA-Public Use
  Company Number: 2013P1021340

PATIENT
  Age: 85 Year
  Sex: Female

DRUGS (3)
  1. CITALOPRAM [Suspect]
  2. VENLAFAXINE [Suspect]
  3. TEMAZEPAM [Concomitant]

REACTIONS (3)
  - Cerebrovascular accident [None]
  - Poisoning [None]
  - Arteriosclerosis [None]
